FAERS Safety Report 7724048-4 (Version None)
Quarter: 2011Q3

REPORT INFORMATION
  Report Type: 
  Country: None (occurrence: None)
  Receive Date: 20110901
  Receipt Date: 20110829
  Transmission Date: 20111222
  Serious: Yes (Other)
  Sender: FDA-Public Use
  Company Number: JP-BAYER-2011-004940

PATIENT
  Age: 65 Year
  Sex: Male

DRUGS (6)
  1. CISPLATIN [Concomitant]
     Dosage: UNK
     Route: 042
  2. EFUDEX [Concomitant]
     Route: 042
  3. NEXAVAR [Suspect]
     Indication: HEPATIC NEOPLASM MALIGNANT
     Dosage: DAILY DOSE 400 MG
     Route: 048
  4. NEXAVAR [Suspect]
     Dosage: DAILY DOSE 800 MG
     Route: 048
  5. NEXAVAR [Suspect]
     Dosage: DAILY DOSE 600 MG
     Route: 048
  6. COMBINATIONS OF ANTINEOPLASTIC AGENTS [Concomitant]

REACTIONS (4)
  - HEPATIC ARTERY OCCLUSION [None]
  - HEPATIC NEOPLASM MALIGNANT [None]
  - HEPATIC ARTERY THROMBOSIS [None]
  - NAUSEA [None]
